FAERS Safety Report 15024093 (Version 1)
Quarter: 2018Q2

REPORT INFORMATION
  Report Type: Spontaneous
  Country: US (occurrence: US)
  Receive Date: 20180525
  Receipt Date: 20180525
  Transmission Date: 20180711
  Serious: Yes (Life-Threatening)
  Sender: FDA-Public Use
  Company Number: None

PATIENT
  Age: 52 Year
  Sex: Female
  Weight: 96.7 kg

DRUGS (1)
  1. PROPOFOL. [Suspect]
     Active Substance: PROPOFOL
     Indication: SEDATION
     Route: 042
     Dates: start: 20180523, end: 20180525

REACTIONS (3)
  - Acute respiratory distress syndrome [None]
  - Withdrawal syndrome [None]
  - Hypertriglyceridaemia [None]

NARRATIVE: CASE EVENT DATE: 20180525
